FAERS Safety Report 7851327 (Version 13)
Quarter: 2013Q2

REPORT INFORMATION
  Report Type: Spontaneous
  Country: US (occurrence: US)
  Receive Date: 20110310
  Receipt Date: 20130401
  Transmission Date: 20140414
  Serious: Yes (Hospitalization, Other)
  Sender: FDA-Public Use
  Company Number: US-ASTRAZENECA-2011SE11389

PATIENT
  Age: 59 Year
  Sex: Female

DRUGS (8)
  1. NEXIUM [Suspect]
     Indication: GASTROOESOPHAGEAL REFLUX DISEASE
     Route: 048
  2. PRILOSEC [Suspect]
     Indication: GASTROOESOPHAGEAL REFLUX DISEASE
     Route: 048
  3. PRILOSEC OTC [Suspect]
     Indication: GASTROOESOPHAGEAL REFLUX DISEASE
     Route: 048
  4. PREVACID [Concomitant]
     Route: 065
  5. XANAX [Concomitant]
  6. TEMAZEPAM [Concomitant]
  7. PANTOPRAZOLE [Concomitant]
  8. BAKING SODA [Concomitant]

REACTIONS (31)
  - Cataract [Unknown]
  - Pulmonary mass [Unknown]
  - Abasia [Unknown]
  - Gastrooesophageal reflux disease [Unknown]
  - Hiatus hernia [Unknown]
  - Osteoporosis [Unknown]
  - Hyperchlorhydria [Unknown]
  - Weight increased [Unknown]
  - Osteoarthritis [Unknown]
  - Pulmonary congestion [Unknown]
  - Bladder pain [Unknown]
  - Pollakiuria [Unknown]
  - Aphagia [Unknown]
  - Gastric disorder [Unknown]
  - Spinal osteoarthritis [Unknown]
  - Oesophageal pain [Unknown]
  - Chest pain [Unknown]
  - Stress [Unknown]
  - Anxiety [Unknown]
  - Oropharyngeal pain [Unknown]
  - Neck pain [Unknown]
  - Local swelling [Unknown]
  - Dyspnoea [Unknown]
  - Pharyngeal oedema [Unknown]
  - Hypoaesthesia [Unknown]
  - Headache [Unknown]
  - Hepatitis [Unknown]
  - Malaise [Unknown]
  - Diarrhoea [Unknown]
  - Hyperhidrosis [Unknown]
  - Drug ineffective [Unknown]
